FAERS Safety Report 19967375 (Version 1)
Quarter: 2021Q4

REPORT INFORMATION
  Report Type: Spontaneous
  Country: US (occurrence: US)
  Receive Date: 20211019
  Receipt Date: 20211019
  Transmission Date: 20220303
  Serious: No
  Sender: FDA-Public Use
  Company Number: US-GLAXOSMITHKLINE-USCH2021071675

PATIENT
  Sex: Female

DRUGS (1)
  1. VOLTAREN ARTHRITIS PAIN [Suspect]
     Active Substance: DICLOFENAC SODIUM
     Indication: Product used for unknown indication
     Dosage: UNK

REACTIONS (7)
  - Nasal discomfort [Unknown]
  - Oral discomfort [Unknown]
  - Eye irritation [Unknown]
  - Throat irritation [Unknown]
  - Insomnia [Unknown]
  - Feeling abnormal [Unknown]
  - Product administered at inappropriate site [Unknown]
